FAERS Safety Report 5877922-8 (Version None)
Quarter: 2008Q3

REPORT INFORMATION
  Report Type: 
  Country: None (occurrence: None)
  Receive Date: 20080911
  Receipt Date: 20080909
  Transmission Date: 20090109
  Serious: Yes (Hospitalization)
  Sender: FDA-Public Use
  Company Number: B0446594A

PATIENT
  Age: 32 Year
  Sex: Male

DRUGS (13)
  1. EPZICOM [Suspect]
     Indication: HIV INFECTION
     Dosage: 1TAB PER DAY
     Route: 048
     Dates: start: 20050614, end: 20060821
  2. NORVIR [Suspect]
     Indication: HIV INFECTION
     Dosage: 100MG PER DAY
     Route: 048
     Dates: start: 20040528, end: 20071213
  3. REYATAZ [Suspect]
     Indication: HIV INFECTION
     Dosage: 300MG PER DAY
     Route: 048
     Dates: start: 20040528, end: 20071213
  4. EPIVIR [Suspect]
     Indication: HIV INFECTION
     Route: 048
     Dates: start: 20050420, end: 20071213
  5. ZIAGEN [Suspect]
     Indication: HIV INFECTION
     Dosage: 300MG TWICE PER DAY
     Route: 048
     Dates: start: 20050401, end: 20071213
  6. VIREAD [Concomitant]
     Indication: HIV INFECTION
     Dosage: 300MG PER DAY
     Route: 048
     Dates: start: 20050401, end: 20050419
  7. CLARITHROMYCIN [Concomitant]
     Indication: OPPORTUNISTIC INFECTION PROPHYLAXIS
     Dosage: 200MG PER DAY
     Route: 048
     Dates: start: 20051014
  8. HIRNAMIN [Concomitant]
     Indication: DEPRESSION
     Route: 048
     Dates: start: 20050720
  9. SERENACE [Concomitant]
     Indication: DEPRESSION
     Route: 048
     Dates: start: 20050720
  10. AKINETON [Concomitant]
     Dosage: 2MG PER DAY
     Route: 048
     Dates: start: 20050720
  11. HUMAN NEUTRAL INSULIN [Concomitant]
     Indication: DIABETES MELLITUS
     Route: 058
     Dates: start: 20060401
  12. ISOPHANE INSULIN [Concomitant]
     Indication: DIABETES MELLITUS
     Route: 058
  13. NOVORAPID [Concomitant]
     Route: 058
     Dates: start: 20060502, end: 20071213

REACTIONS (2)
  - CONDITION AGGRAVATED [None]
  - RENAL IMPAIRMENT [None]
